FAERS Safety Report 23813658 (Version 1)
Quarter: 2024Q2

REPORT INFORMATION
  Report Type: Spontaneous
  Country: US (occurrence: US)
  Receive Date: 20240503
  Receipt Date: 20240503
  Transmission Date: 20240716
  Serious: Yes (Other)
  Sender: FDA-Public Use
  Company Number: US-AUROBINDO-AUR-APL-2024-017269

PATIENT
  Age: 30 Year
  Sex: Male
  Weight: 134.2 kg

DRUGS (1)
  1. EMTRICITABINE\TENOFOVIR DISOPROXIL FUMARATE [Suspect]
     Active Substance: EMTRICITABINE\TENOFOVIR DISOPROXIL FUMARATE
     Indication: Prophylaxis
     Dosage: 1 DOSAGE FORM, DAILY
     Route: 048
     Dates: start: 20240201

REACTIONS (3)
  - Neuropathy peripheral [Not Recovered/Not Resolved]
  - Headache [Not Recovered/Not Resolved]
  - Faeces pale [Not Recovered/Not Resolved]

NARRATIVE: CASE EVENT DATE: 20240329
